FAERS Safety Report 9028788 (Version 1)
Quarter: 2013Q1

REPORT INFORMATION
  Report Type: Spontaneous
  Country: None (occurrence: US)
  Receive Date: 20130124
  Receipt Date: 20130124
  Transmission Date: 20140127
  Serious: No
  Sender: FDA-Public Use
  Company Number: US-BAUSCH-2012BL002886

PATIENT
  Sex: Female

DRUGS (2)
  1. ALAWAY [Suspect]
     Indication: MULTIPLE ALLERGIES
     Route: 047
     Dates: start: 201204
  2. BLINK [Concomitant]

REACTIONS (2)
  - Miosis [Not Recovered/Not Resolved]
  - Asthenopia [Not Recovered/Not Resolved]
